FAERS Safety Report 11133153 (Version 1)
Quarter: 2015Q2

REPORT INFORMATION
  Report Type: Report from Study
  Country: US (occurrence: US)
  Receive Date: 20150522
  Receipt Date: 20150522
  Transmission Date: 20150821
  Serious: Yes (Other)
  Sender: FDA-Public Use
  Company Number: US-BAYER-2015-181074

PATIENT
  Age: 83 Year
  Sex: Female

DRUGS (1)
  1. STIVARGA [Suspect]
     Active Substance: REGORAFENIB
     Indication: COLON CANCER
     Dosage: 160 MG DAILY FOR 1 WEEK ON THEN 1 WEEK OFF THEN REPEAT
     Route: 048
     Dates: start: 20150309

REACTIONS (3)
  - Skin exfoliation [Unknown]
  - Anxiety [Unknown]
  - Adverse drug reaction [None]

NARRATIVE: CASE EVENT DATE: 201505
